FAERS Safety Report 9008794 (Version 1)
Quarter: 2013Q1

REPORT INFORMATION
  Report Type: Spontaneous
  Country: US (occurrence: US)
  Receive Date: 20130111
  Receipt Date: 20130111
  Transmission Date: 20140127
  Serious: Yes (Other)
  Sender: FDA-Public Use
  Company Number: US-FRI-1000041484

PATIENT
  Age: 82 Year
  Sex: Male

DRUGS (5)
  1. VIIBRYD [Suspect]
     Indication: DEPRESSION
     Dosage: 10 MG
     Route: 048
     Dates: start: 201212, end: 201212
  2. VIIBRYD [Suspect]
     Indication: DEPRESSION
     Dosage: 20 MG
     Route: 048
     Dates: start: 201212, end: 201212
  3. OXYCONTIN [Concomitant]
  4. FENTANYL [Concomitant]
  5. VITAMINS NOS [Concomitant]

REACTIONS (1)
  - Urinary retention [Recovered/Resolved]
